FAERS Safety Report 14457810 (Version 1)
Quarter: 2018Q1

REPORT INFORMATION
  Report Type: Spontaneous
  Country: US (occurrence: US)
  Receive Date: 20180128
  Receipt Date: 20180128
  Transmission Date: 20180509
  Serious: Yes (Life-Threatening, Hospitalization)
  Sender: FDA-Public Use
  Company Number: None

PATIENT
  Age: 79 Year
  Sex: Male

DRUGS (9)
  1. LIPITOR [Concomitant]
     Active Substance: ATORVASTATIN CALCIUM
  2. FLECAINIDE ACETATE 100 MG TABLETS [Suspect]
     Active Substance: FLECAINIDE ACETATE
     Indication: ARRHYTHMIA
     Dosage: 1 PILL ONCE DAILY BY MOUTH
     Route: 048
     Dates: start: 20171203, end: 20171221
  3. ASPIRIN. [Concomitant]
     Active Substance: ASPIRIN
  4. COUMADIN [Concomitant]
     Active Substance: WARFARIN SODIUM
  5. ZETIA [Concomitant]
     Active Substance: EZETIMIBE
  6. EYE VITAMIN AND MINERAL [Concomitant]
  7. SYNTHROID [Concomitant]
     Active Substance: LEVOTHYROXINE SODIUM
  8. COZAAR [Concomitant]
     Active Substance: LOSARTAN POTASSIUM
  9. CARVEDILOL. [Concomitant]
     Active Substance: CARVEDILOL

REACTIONS (6)
  - Blood creatinine increased [None]
  - Oedema peripheral [None]
  - Renal disorder [None]
  - Decreased appetite [None]
  - Laziness [None]
  - Asthenia [None]

NARRATIVE: CASE EVENT DATE: 20171221
